FAERS Safety Report 8432102-7 (Version None)
Quarter: 2012Q2

REPORT INFORMATION
  Report Type: 
  Country: None (occurrence: None)
  Receive Date: 20120613
  Receipt Date: 20120607
  Transmission Date: 20120825
  Serious: Yes (Death)
  Sender: FDA-Public Use
  Company Number: JP-SANOFI-AVENTIS-2012SA035079

PATIENT
  Age: 74 Year
  Sex: Male
  Weight: 69.6 kg

DRUGS (9)
  1. OMEPRAZOLE [Concomitant]
     Indication: PROPHYLAXIS
     Route: 048
     Dates: start: 20090515
  2. BASEN [Concomitant]
     Indication: DIABETES MELLITUS
     Route: 048
     Dates: start: 20090602
  3. ATORVASTATIN CALCIUM [Concomitant]
     Route: 048
     Dates: start: 20090515
  4. CLOPIDOGREL BISULFATE [Suspect]
     Dosage: STARTING DOSE
     Route: 048
  5. CANDESARTAN CILEXETIL [Concomitant]
     Route: 048
     Dates: start: 20090515
  6. CLOPIDOGREL BISULFATE [Suspect]
     Dosage: STARTING DOSE
     Route: 048
     Dates: start: 20090528
  7. CARVEDILOL [Concomitant]
     Route: 048
     Dates: start: 20090515
  8. PIOGLITAZONE [Concomitant]
     Indication: DIABETES MELLITUS
     Route: 048
  9. ASPIRIN [Concomitant]
     Route: 048
     Dates: start: 20090528

REACTIONS (2)
  - SUBARACHNOID HAEMORRHAGE [None]
  - CARDIAC DEATH [None]
